FAERS Safety Report 19098659 (Version 1)
Quarter: 2021Q2

REPORT INFORMATION
  Report Type: Report from Study
  Country: BR (occurrence: BR)
  Receive Date: 20210406
  Receipt Date: 20210406
  Transmission Date: 20210717
  Serious: Yes (Other)
  Sender: FDA-Public Use
  Company Number: NVSC2021BR063061

PATIENT

DRUGS (10)
  1. METOPROLOL. [Suspect]
     Active Substance: METOPROLOL
     Indication: CARDIAC DISORDER
     Dosage: 50 MG, BID MORNING AND NIGHT (FROM 1 YEAR AGO)
     Route: 048
  2. ACETYLSALICYLIC ACID [Concomitant]
     Active Substance: ASPIRIN
     Indication: ANTICOAGULANT THERAPY
     Dosage: 1 DF, QD (STOPPED 1 YEAR AGO)
     Route: 048
     Dates: start: 2018
  3. SIMVASTATIN. [Suspect]
     Active Substance: SIMVASTATIN
     Indication: BLOOD CHOLESTEROL ABNORMAL
     Dosage: 20 MG, QD
     Route: 048
     Dates: start: 2018
  4. CARVEDILOL. [Suspect]
     Active Substance: CARVEDILOL
     Indication: CARDIAC DISORDER
     Dosage: 6 MG, BID
     Route: 048
     Dates: start: 2018
  5. CARVEDILOL. [Suspect]
     Active Substance: CARVEDILOL
     Dosage: 12 MG, BID
     Route: 048
  6. CARVEDILOL. [Suspect]
     Active Substance: CARVEDILOL
     Dosage: 25 MG, BID
     Route: 048
  7. FUROSEMIDE. [Concomitant]
     Active Substance: FUROSEMIDE
     Indication: CARDIAC DISORDER
     Dosage: 40 MG, QD (FROM 2 AND HALF YEARS AGO)
     Route: 048
  8. ESPIRONOLACTON [Suspect]
     Active Substance: SPIRONOLACTONE
     Indication: CARDIAC DISORDER
     Dosage: 25 MG, QD
     Route: 048
  9. CARVEDILOL. [Suspect]
     Active Substance: CARVEDILOL
     Dosage: 25 MG, BID (1 YEAR AGO)
     Route: 048
  10. ENTRESTO [Suspect]
     Active Substance: SACUBITRIL\VALSARTAN
     Indication: ATRIAL FIBRILLATION
     Dosage: 1 DF, BID MORNING AND NIGHT (FROM 1 AND HALF YARS AGO)
     Route: 048

REACTIONS (13)
  - Nasal congestion [Recovered/Resolved]
  - Dyspnoea [Recovered/Resolved]
  - Heart rate decreased [Not Recovered/Not Resolved]
  - Pneumonia [Recovered/Resolved]
  - Erectile dysfunction [Not Recovered/Not Resolved]
  - Breast enlargement [Not Recovered/Not Resolved]
  - Diarrhoea [Recovered/Resolved]
  - COVID-19 [Recovered/Resolved]
  - Pain [Recovered/Resolved]
  - Pulmonary fibrosis [Unknown]
  - Vein disorder [Not Recovered/Not Resolved]
  - Pyrexia [Recovered/Resolved]
  - Product use in unapproved indication [Unknown]

NARRATIVE: CASE EVENT DATE: 202011
